FAERS Safety Report 10642436 (Version 1)
Quarter: 2014Q4

REPORT INFORMATION
  Report Type: Spontaneous
  Country: GB (occurrence: None)
  Receive Date: 20141208
  Receipt Date: 20141208
  Transmission Date: 20150529
  Serious: Yes (Other)
  Sender: FDA-Public Use
  Company Number: COL_18674_2014

PATIENT
  Age: 18 Year
  Sex: Female

DRUGS (1)
  1. CHLORHEXIDINE (CHLORHEXIDINE) [Suspect]
     Active Substance: CHLORHEXIDINE
     Indication: GINGIVITIS
     Dosage: ONCE
     Route: 048
     Dates: start: 20141024, end: 20141024

REACTIONS (1)
  - Pharyngeal oedema [None]

NARRATIVE: CASE EVENT DATE: 20141024
